FAERS Safety Report 7801573-9 (Version None)
Quarter: 2011Q4

REPORT INFORMATION
  Report Type: 
  Country: None (occurrence: None)
  Receive Date: 20111006
  Receipt Date: 20111006
  Transmission Date: 20120403
  Serious: Yes (Hospitalization)
  Sender: FDA-Public Use
  Company Number: None

PATIENT
  Age: 70 Year
  Sex: Male
  Weight: 67.7 kg

DRUGS (14)
  1. RAMIPRIL [Concomitant]
  2. LUMIGAN [Concomitant]
  3. LANTUS [Concomitant]
  4. HUMALOG [Concomitant]
  5. DILTIAZEM HCL [Concomitant]
  6. METFORMIN HYDROCHLORIDE [Concomitant]
  7. COUMADIN [Suspect]
     Indication: ATRIAL FIBRILLATION
     Dosage: PO CHRONIC
     Route: 048
  8. DIGOXIN [Suspect]
     Indication: CORONARY ARTERY DISEASE
     Dosage: 0.25 DAILY PO CHRONIC
     Route: 048
  9. APAP TAB [Concomitant]
  10. NDALO [Concomitant]
  11. LASIX [Concomitant]
  12. POTASSIUM CHLORIDE [Concomitant]
  13. OMEPRAZOLE [Concomitant]
  14. METOPROLOL TARTRATE [Concomitant]

REACTIONS (6)
  - INTESTINAL HAEMATOMA [None]
  - HYPERKALAEMIA [None]
  - HYPERNATRAEMIA [None]
  - CARDIOACTIVE DRUG LEVEL INCREASED [None]
  - WRONG TECHNIQUE IN DRUG USAGE PROCESS [None]
  - OVERDOSE [None]
